FAERS Safety Report 5773458-3 (Version None)
Quarter: 2008Q2

REPORT INFORMATION
  Report Type: 
  Country: None (occurrence: None)
  Receive Date: 20080601
  Receipt Date: 20080105
  Transmission Date: 20081010
  Serious: No
  Sender: FDA-Public Use
  Company Number: US200706002501

PATIENT
  Age: 58 Year
  Sex: Female
  Weight: 99.8 kg

DRUGS (15)
  1. BYETTA [Suspect]
     Indication: TYPE 2 DIABETES MELLITUS
     Dosage: SEE IMAGE
     Route: 058
     Dates: start: 20060101, end: 20060101
  2. BYETTA [Suspect]
     Indication: TYPE 2 DIABETES MELLITUS
     Dosage: SEE IMAGE
     Route: 058
     Dates: start: 20070101, end: 20070301
  3. BYETTA [Suspect]
     Indication: TYPE 2 DIABETES MELLITUS
     Dosage: SEE IMAGE
     Route: 058
     Dates: start: 20070301, end: 20070601
  4. BYETTA [Suspect]
     Indication: TYPE 2 DIABETES MELLITUS
     Dosage: SEE IMAGE
     Route: 058
     Dates: start: 20070601, end: 20070901
  5. BYETTA [Suspect]
     Indication: TYPE 2 DIABETES MELLITUS
     Dosage: SEE IMAGE
     Route: 058
     Dates: start: 20060101
  6. BYETTA [Suspect]
     Indication: TYPE 2 DIABETES MELLITUS
     Dosage: SEE IMAGE
     Route: 058
     Dates: start: 20070901
  7. BYETTA [Suspect]
  8. METFORMIN HCL [Concomitant]
  9. KLOR-CON [Concomitant]
  10. LASIX [Concomitant]
  11. ASPIRIN [Concomitant]
  12. GABAPENTIN [Concomitant]
  13. ZESTRIL [Concomitant]
  14. ACIPHEX [Concomitant]
  15. ALBUTEROL [Concomitant]

REACTIONS (9)
  - BLOOD GLUCOSE INCREASED [None]
  - DECREASED APPETITE [None]
  - DYSGEUSIA [None]
  - HEADACHE [None]
  - INCORRECT DOSE ADMINISTERED [None]
  - NAUSEA [None]
  - STRESS [None]
  - VOMITING [None]
  - WEIGHT DECREASED [None]
